FAERS Safety Report 9325683 (Version 1)
Quarter: 2013Q2

REPORT INFORMATION
  Report Type: Spontaneous
  Country: BE (occurrence: BE)
  Receive Date: 20130604
  Receipt Date: 20130604
  Transmission Date: 20140414
  Serious: Yes (Hospitalization)
  Sender: FDA-Public Use
  Company Number: BE-BAYER-2013-065741

PATIENT
  Age: 69 Year
  Sex: Female

DRUGS (3)
  1. PROFLOX [Suspect]
     Route: 048
     Dates: start: 201302, end: 201302
  2. L-THYROXINE [Concomitant]
  3. PANTOPRAZOLE [Concomitant]

REACTIONS (3)
  - Hypersensitivity [Recovered/Resolved]
  - Respiratory depression [Recovered/Resolved]
  - Oedema mouth [Not Recovered/Not Resolved]
